FAERS Safety Report 11612179 (Version 1)
Quarter: 2015Q4

REPORT INFORMATION
  Report Type: Spontaneous
  Country: US (occurrence: US)
  Receive Date: 20151008
  Receipt Date: 20151008
  Transmission Date: 20160304
  Serious: Yes (Other)
  Sender: FDA-Public Use
  Company Number: US-JNJFOC-20150923230

PATIENT
  Age: 80 Year
  Sex: Female
  Weight: 66.23 kg

DRUGS (6)
  1. FELODIN [Concomitant]
     Indication: INFLAMMATION
     Dosage: 1/2 TABLET AS NECESSARY
     Route: 065
  2. TYLENOL EXTRA STRENGTH [Suspect]
     Active Substance: ACETAMINOPHEN
     Indication: MUSCULOSKELETAL DISORDER
     Dosage: 2 OR 1 CAPLET
     Route: 048
     Dates: start: 20150912
  3. PREVACID [Concomitant]
     Active Substance: LANSOPRAZOLE
     Indication: ABDOMINAL PAIN UPPER
     Dosage: 2 DOSES FOR YEARS
     Route: 065
  4. TRANXENE T-TAB [Concomitant]
     Active Substance: CLORAZEPATE DIPOTASSIUM
     Indication: MUSCLE SPASMS
     Dosage: YEARS
     Route: 065
  5. TRANXENE T-TAB [Concomitant]
     Active Substance: CLORAZEPATE DIPOTASSIUM
     Indication: ANXIETY
     Dosage: YEARS
     Route: 065
  6. ROBITUSSIN (GUAIFENESIN) [Suspect]
     Active Substance: GUAIFENESIN
     Indication: PRODUCT USED FOR UNKNOWN INDICATION
     Route: 065

REACTIONS (6)
  - Eye swelling [Unknown]
  - Rhinorrhoea [Unknown]
  - Fatigue [Unknown]
  - Underdose [Unknown]
  - Loss of consciousness [Recovered/Resolved]
  - Product use issue [Unknown]

NARRATIVE: CASE EVENT DATE: 20150912
